FAERS Safety Report 7277854-7 (Version None)
Quarter: 2011Q1

REPORT INFORMATION
  Report Type: 
  Country: None (occurrence: None)
  Receive Date: 20110207
  Receipt Date: 20110128
  Transmission Date: 20110831
  Serious: Yes (Other)
  Sender: FDA-Public Use
  Company Number: AT-BAYER-2011-007367

PATIENT
  Sex: Male

DRUGS (10)
  1. NEBIDO [Suspect]
     Indication: HYPOGONADISM MALE
     Dosage: UNK
     Route: 030
     Dates: start: 20090327, end: 20100601
  2. NEBIDO [Suspect]
     Dosage: UNK
     Dates: start: 20110121
  3. PARKEMED [Suspect]
     Indication: PRODUCT USED FOR UNKNOWN INDICATION
  4. UNCODEABLE ^UNCLASSIFIABLE^ [Suspect]
  5. RELPAX [Concomitant]
     Dosage: UNK UNK, PRN
  6. ACICLOVIR [Suspect]
     Indication: PRODUCT USED FOR UNKNOWN INDICATION
  7. CIPROXIN [Suspect]
     Indication: PRODUCT USED FOR UNKNOWN INDICATION
  8. UNCODEABLE ^UNCLASSIFIABLE^ [Suspect]
     Indication: PRODUCT USED FOR UNKNOWN INDICATION
  9. PSYCHOPAX [Suspect]
     Indication: PRODUCT USED FOR UNKNOWN INDICATION
  10. UNCODEABLE ^UNCLASSIFIABLE^ [Suspect]

REACTIONS (3)
  - PULMONARY MICROEMBOLI [None]
  - COUGH [None]
  - DYSPNOEA [None]
